FAERS Safety Report 4753384-9 (Version None)
Quarter: 2005Q3

REPORT INFORMATION
  Report Type: 
  Country: None (occurrence: None)
  Receive Date: 20050824
  Receipt Date: 20050810
  Transmission Date: 20060218
  Serious: Yes (Death, Hospitalization, Other)
  Sender: FDA-Public Use
  Company Number: USA0508105088

PATIENT
  Age: 70 Year
  Sex: Male

DRUGS (2)
  1. HUMULIN R [Suspect]
     Indication: DIABETES MELLITUS
  2. HUMULIN N [Suspect]
     Indication: DIABETES MELLITUS

REACTIONS (4)
  - FOOT AMPUTATION [None]
  - IMPAIRED HEALING [None]
  - POSTOPERATIVE INFECTION [None]
  - TOE AMPUTATION [None]
